FAERS Safety Report 7992335-0 (Version None)
Quarter: 2011Q4

REPORT INFORMATION
  Report Type: 
  Country: None (occurrence: None)
  Receive Date: 20111219
  Receipt Date: 20110404
  Transmission Date: 20120403
  Serious: No
  Sender: FDA-Public Use
  Company Number: US-ASTRAZENECA-2011SE18816

PATIENT
  Age: 81 Year
  Sex: Female

DRUGS (2)
  1. LISINOPRIL [Concomitant]
  2. CRESTOR [Suspect]
     Indication: LOW DENSITY LIPOPROTEIN INCREASED
     Route: 048

REACTIONS (2)
  - MUSCLE SPASMS [None]
  - SLEEP DISORDER DUE TO A GENERAL MEDICAL CONDITION [None]
